FAERS Safety Report 6253988-0 (Version None)
Quarter: 2009Q3

REPORT INFORMATION
  Report Type: 
  Country: None (occurrence: None)
  Receive Date: 20090702
  Receipt Date: 20090623
  Transmission Date: 20100115
  Serious: Yes (Other)
  Sender: FDA-Public Use
  Company Number: MY-JNJFOC-20090608346

PATIENT
  Sex: Male

DRUGS (4)
  1. RISPERDAL [Suspect]
     Indication: PSYCHOTIC DISORDER
     Route: 048
  2. RISPERDAL CONSTA [Suspect]
     Indication: PSYCHOTIC DISORDER
     Route: 030
  3. SLEEP MEDICATION NOS [Concomitant]
     Indication: SLEEP DISORDER
  4. UNKNOWN MEDICATION [Concomitant]

REACTIONS (10)
  - AGGRESSION [None]
  - AGITATION [None]
  - AMNESIA [None]
  - CONFUSIONAL STATE [None]
  - DYSURIA [None]
  - HAEMATOCHEZIA [None]
  - HYPERSOMNIA [None]
  - POOR QUALITY SLEEP [None]
  - SYNCOPE [None]
  - VISION BLURRED [None]
